FAERS Safety Report 6876721-8 (Version None)
Quarter: 2010Q3

REPORT INFORMATION
  Report Type: 
  Country: None (occurrence: None)
  Receive Date: 20100727
  Receipt Date: 20100713
  Transmission Date: 20110219
  Serious: Yes (Hospitalization, Other)
  Sender: FDA-Public Use
  Company Number: JP-MYLANLABS-2010S1012435

PATIENT
  Age: 70 Year
  Sex: Female
  Weight: 51 kg

DRUGS (7)
  1. LANSOPRAZOLE [Suspect]
     Route: 065
     Dates: start: 20070901
  2. RALOXIFENE HCL [Suspect]
     Route: 065
  3. WARFARIN [Concomitant]
     Indication: VENOUS THROMBOSIS LIMB
     Route: 065
  4. PIPERACILLIN [Concomitant]
     Indication: CELLULITIS
     Route: 065
  5. ENALAPRIL MALEATE [Concomitant]
     Route: 065
  6. PREDNISOLONE [Concomitant]
     Indication: NEPHRITIS
     Route: 065
  7. PREDNISOLONE [Concomitant]
     Route: 065

REACTIONS (2)
  - COLITIS COLLAGENOUS [None]
  - VENOUS THROMBOSIS [None]
